FAERS Safety Report 6958614-0 (Version None)
Quarter: 2010Q3

REPORT INFORMATION
  Report Type: 
  Country: None (occurrence: None)
  Receive Date: 20100827
  Receipt Date: 20100827
  Transmission Date: 20110219
  Serious: Yes (Life-Threatening)
  Sender: FDA-Public Use
  Company Number: None

PATIENT
  Age: 72 Year
  Sex: Female
  Weight: 63.5036 kg

DRUGS (1)
  1. CLARINEX [Suspect]
     Indication: SEASONAL ALLERGY
     Dosage: FIRST + ONLY DOSE TOOK ONLY 1 PILL
     Dates: start: 20091001

REACTIONS (3)
  - DYSPNOEA [None]
  - NASAL DISORDER [None]
  - THROAT TIGHTNESS [None]
